FAERS Safety Report 4866750-8 (Version None)
Quarter: 2005Q4

REPORT INFORMATION
  Report Type: 
  Country: None (occurrence: None)
  Receive Date: 20051221
  Receipt Date: 20051207
  Transmission Date: 20060501
  Serious: Yes (Hospitalization)
  Sender: FDA-Public Use
  Company Number: S05-FRA-03867-01

PATIENT
  Age: 89 Year
  Sex: Male

DRUGS (8)
  1. CITALOPRAM HYDROBROMIDE [Suspect]
     Dosage: 1 UNK QD PO
     Route: 048
  2. TIAPRIDAL (TIAPRIDE) [Suspect]
     Dosage: 30 DROPS QD PO
     Route: 048
     Dates: start: 20050601
  3. MEDIATENSYL (URAPIDIL) [Suspect]
     Dosage: 1 UNK QD
  4. XANAX [Concomitant]
  5. AMLODIPINE BESYLATE [Concomitant]
  6. PLAVIX [Concomitant]
  7. FUROSEMIDE [Concomitant]
  8. DISCOTRINE (GLYCERYL TRINITRATE) [Concomitant]

REACTIONS (4)
  - BLOOD CREATININE INCREASED [None]
  - DYSKINESIA [None]
  - MYOCLONUS [None]
  - TREMOR [None]
